FAERS Safety Report 9549402 (Version 1)
Quarter: 2013Q3

REPORT INFORMATION
  Report Type: Spontaneous
  Country: BR (occurrence: BR)
  Receive Date: 20130924
  Receipt Date: 20130924
  Transmission Date: 20140515
  Serious: Yes (Other)
  Sender: FDA-Public Use
  Company Number: BR-PFIZER INC-2013272072

PATIENT
  Age: 60 Year
  Sex: Female
  Weight: 75 kg

DRUGS (5)
  1. LIPITOR [Suspect]
  2. CITALOR [Suspect]
  3. ARADOIS [Concomitant]
  4. MAXAPRAN [Concomitant]
  5. ROZUCOR [Concomitant]

REACTIONS (5)
  - Breast cancer [Recovered/Resolved]
  - Metastases to lung [Unknown]
  - Amnesia [Unknown]
  - Panic disorder [Unknown]
  - Headache [Unknown]
